FAERS Safety Report 5230471-2 (Version None)
Quarter: 2007Q1

REPORT INFORMATION
  Report Type: 
  Country: None (occurrence: None)
  Receive Date: 20070206
  Receipt Date: 20070130
  Transmission Date: 20070707
  Serious: Yes (Hospitalization, Disabling)
  Sender: FDA-Public Use
  Company Number: NO-SOLVAY-00207000226

PATIENT
  Age: 8514 Day
  Sex: Female

DRUGS (5)
  1. PROGESTERONE [MANUFACTURER UNKNOWN] [Suspect]
     Indication: IN VITRO FERTILISATION
     Dosage: DAILY DOSE: 600 MILLIGRAM(S)
     Route: 067
     Dates: start: 20061201, end: 20061203
  2. ORG 36286 AND PLACEBO OR PUREGON AND PLACEBO [Suspect]
     Indication: ILL-DEFINED DISORDER
     Dosage: DAILY DOSE: 200 INTERNATIONAL UNIT(S)
     Route: 058
     Dates: start: 20061119, end: 20061125
  3. FOLLITROPIN BETA [Suspect]
     Indication: ILL-DEFINED DISORDER
     Dosage: DAILY DOSE: 200 INTERNATIONAL UNIT(S)
     Route: 058
     Dates: start: 20061126, end: 20061129
  4. GANIRELIX ACETATE INJECTION [Suspect]
     Indication: ILL-DEFINED DISORDER
     Dosage: DAILY DOSE: .25 MILLIGRAM(S)
     Route: 058
     Dates: start: 20061123, end: 20061129
  5. CHORIONIC GONADOTROPIN [Suspect]
     Indication: OVULATION INDUCTION
     Dosage: DAILY DOSE: 10000 INTERNATIONAL UNIT(S)
     Route: 030
     Dates: start: 20061129, end: 20061129

REACTIONS (1)
  - ECTOPIC PREGNANCY [None]
